FAERS Safety Report 5703334-3 (Version None)
Quarter: 2008Q2

REPORT INFORMATION
  Report Type: 
  Country: None (occurrence: None)
  Receive Date: 20080411
  Receipt Date: 20080401
  Transmission Date: 20081010
  Serious: Yes (Hospitalization, Other)
  Sender: FDA-Public Use
  Company Number: GB-PFIZER INC-2008025307

PATIENT
  Sex: Female

DRUGS (7)
  1. GABAPENTIN [Suspect]
     Indication: NEURALGIA
  2. GABAPENTIN [Interacting]
  3. HYPERICUM EXTRACT [Interacting]
  4. PARACETAMOL [Interacting]
     Route: 042
  5. PETHIDINE [Interacting]
     Indication: PAIN
     Route: 031
  6. TRAMADOL HCL [Interacting]
     Indication: PAIN
     Route: 048
  7. CONTRACEPTIVE, UNSPECIFIED [Suspect]
     Indication: CONTRACEPTION
     Route: 048

REACTIONS (8)
  - CONFUSIONAL STATE [None]
  - DRUG INTERACTION [None]
  - HALLUCINATION, VISUAL [None]
  - LOWER LIMB FRACTURE [None]
  - PYREXIA [None]
  - ROAD TRAFFIC ACCIDENT [None]
  - SEROTONIN SYNDROME [None]
  - TREMOR [None]
